FAERS Safety Report 8563597-6 (Version None)
Quarter: 2012Q3

REPORT INFORMATION
  Report Type: 
  Country: None (occurrence: None)
  Receive Date: 20120803
  Receipt Date: 20120727
  Transmission Date: 20120928
  Serious: Yes (Other)
  Sender: FDA-Public Use
  Company Number: GB-009507513-1207GBR012578

PATIENT

DRUGS (19)
  1. FOLIC ACID [Concomitant]
     Dosage: 5 MG, QD
  2. AMLODIPINE BESYLATE [Concomitant]
     Dosage: 1 DF, PRN
  3. RAMIPRIL [Concomitant]
     Dosage: 1.25 MG, QD
  4. CLOPIDOGREL [Concomitant]
     Dosage: 75 MG, QD
  5. ADCAL-D3 [Concomitant]
     Dosage: 1 UNK, UNK
  6. BUMETANIDE [Concomitant]
     Dosage: 5 MG, QD
  7. DOCUSATE SODIUM [Concomitant]
     Dosage: 100 MG, BID
  8. FERROUS SULFATE TAB [Concomitant]
     Dosage: 200 MG, BID
  9. ALENDRONATE SODIUM [Concomitant]
     Dosage: 1 DF, QW
  10. ASPIRIN [Concomitant]
     Dosage: 75 MG, QD
  11. LACTULOSE [Concomitant]
     Dosage: 15 ML, BID
  12. ACETAMINOPHEN [Concomitant]
     Dosage: 1000 MG, PRN
  13. SENNA-MINT WAF [Concomitant]
     Dosage: 7.5 MG, QD
  14. VALPROATE SODIUM [Concomitant]
     Dosage: 300 MG, BID
  15. INVANZ [Suspect]
     Indication: URINARY TRACT INFECTION
     Dosage: 1 UNK, UNK
     Route: 042
     Dates: start: 20120524, end: 20120527
  16. ZAPAIN [Concomitant]
  17. ATORVASTATIN [Concomitant]
     Dosage: 40 MG, QD
  18. INFUMORPH [Concomitant]
     Dosage: 30 MG, BID
  19. OMEPRAZOLE [Concomitant]
     Dosage: 40 MG, QD

REACTIONS (1)
  - EPILEPSY [None]
